FAERS Safety Report 5855083-9 (Version None)
Quarter: 2008Q3

REPORT INFORMATION
  Report Type: 
  Country: None (occurrence: None)
  Receive Date: 20080822
  Receipt Date: 20080627
  Transmission Date: 20090109
  Serious: No
  Sender: FDA-Public Use
  Company Number: US-ABBOTT-08P-163-0459928-00

PATIENT
  Sex: Female
  Weight: 99.88 kg

DRUGS (4)
  1. SYNTHROID [Suspect]
     Indication: HORMONE REPLACEMENT THERAPY
     Route: 048
     Dates: start: 19910101, end: 20080101
  2. SYNTHROID [Suspect]
     Route: 048
     Dates: start: 20080101
  3. M.V.I. [Concomitant]
     Indication: DRUG USE FOR UNKNOWN INDICATION
  4. HORMONE REPLACEMENT [Concomitant]
     Indication: DRUG USE FOR UNKNOWN INDICATION
     Dates: end: 20050101

REACTIONS (6)
  - ARTHROPATHY [None]
  - DRUG INEFFECTIVE [None]
  - EXERCISE TOLERANCE DECREASED [None]
  - FATIGUE [None]
  - INSOMNIA [None]
  - WEIGHT INCREASED [None]
